FAERS Safety Report 9785152 (Version 1)
Quarter: 2013Q4

REPORT INFORMATION
  Report Type: Spontaneous
  Country: FR (occurrence: FR)
  Receive Date: 20131227
  Receipt Date: 20131227
  Transmission Date: 20140711
  Serious: Yes (Hospitalization)
  Sender: FDA-Public Use
  Company Number: FR-ASTRAZENECA-2013SE93304

PATIENT
  Age: 25428 Day
  Sex: Female

DRUGS (5)
  1. INEXIUM [Suspect]
     Route: 048
  2. CRESTOR [Suspect]
     Route: 048
  3. ROACTEMRA [Suspect]
     Route: 065
     Dates: start: 20100422
  4. OROCAL D3 [Suspect]
     Route: 048
  5. NOVATREX [Suspect]
     Route: 048

REACTIONS (1)
  - Nephrolithiasis [Not Recovered/Not Resolved]
